FAERS Safety Report 12766640 (Version 1)
Quarter: 2016Q3

REPORT INFORMATION
  Report Type: Spontaneous
  Country: FR (occurrence: FR)
  Receive Date: 20160921
  Receipt Date: 20160921
  Transmission Date: 20161109
  Serious: Yes (Hospitalization)
  Sender: FDA-Public Use
  Company Number: FR-JNJFOC-20160915546

PATIENT
  Age: 39 Year
  Sex: Male

DRUGS (4)
  1. FORLAX [Suspect]
     Active Substance: POLYETHYLENE GLYCOL 4000
     Indication: CONSTIPATION
     Dosage: AS A LONG DURATION TREATMENT
     Route: 048
  2. RISPERDAL [Suspect]
     Active Substance: RISPERIDONE
     Indication: AUTISM SPECTRUM DISORDER
     Dosage: (2MG-0-4MG); AS A LONG DURATION TREATMENT
     Route: 048
  3. DEPAKINE [Suspect]
     Active Substance: VALPROATE SODIUM
     Indication: AUTISM SPECTRUM DISORDER
     Dosage: AS A LONG DURATION TREATMENT
     Route: 048
  4. TERCIAN [Suspect]
     Active Substance: CYAMEMAZINE
     Indication: AUTISM SPECTRUM DISORDER
     Dosage: AS A LONG DURATION TREATMENT
     Route: 048

REACTIONS (4)
  - Off label use [Unknown]
  - Urinary retention [Unknown]
  - Product use issue [Unknown]
  - Choking [Recovered/Resolved]

NARRATIVE: CASE EVENT DATE: 20160724
